FAERS Safety Report 6410895-8 (Version None)
Quarter: 2009Q4

REPORT INFORMATION
  Report Type: 
  Country: None (occurrence: None)
  Receive Date: 20091022
  Receipt Date: 20091014
  Transmission Date: 20100525
  Serious: No
  Sender: FDA-Public Use
  Company Number: US-B.I. PHARMACEUTICALS,INC./RIDGEFIELD-2009-BP-11161BP

PATIENT
  Sex: Female

DRUGS (12)
  1. SPIRIVA [Suspect]
     Indication: CHRONIC OBSTRUCTIVE PULMONARY DISEASE
     Dosage: 18 MCG
     Dates: start: 20080901
  2. SPIRIVA [Suspect]
     Indication: EMPHYSEMA
  3. SPIRIVA [Suspect]
     Indication: BRONCHITIS CHRONIC
  4. SPIRIVA [Suspect]
     Indication: ASTHMA
  5. SPIRIVA [Suspect]
     Indication: DYSPNOEA
  6. ALBUTEROL SULFATE AUTOHALER [Concomitant]
     Indication: DYSPNOEA
  7. COZAAR [Concomitant]
     Dosage: 150 MG
  8. FUROSEMIDE [Concomitant]
     Dosage: 40 MG
  9. PROPRANOLOL [Concomitant]
     Dosage: 120 MG
  10. TEKTURNA [Concomitant]
     Dosage: 150 MG
  11. GENTEAL PM OINTMENT [Concomitant]
  12. MEDICATION NOT OTHERWISE SPECIFIED [Concomitant]
     Dates: start: 19500101

REACTIONS (2)
  - CATARACT [None]
  - DRY MOUTH [None]
